FAERS Safety Report 5214248-X (Version None)
Quarter: 2007Q1

REPORT INFORMATION
  Report Type: 
  Country: None (occurrence: None)
  Receive Date: 20070122
  Receipt Date: 20070117
  Transmission Date: 20070707
  Serious: Yes (Death)
  Sender: FDA-Public Use
  Company Number: 2007AP00035

PATIENT
  Age: 61 Year
  Sex: Male
  Weight: 64 kg

DRUGS (7)
  1. MEROPENEM [Suspect]
     Indication: PNEUMONIA
     Route: 041
     Dates: start: 20061006, end: 20061010
  2. LASIX [Concomitant]
     Indication: HYPERTENSION
     Route: 042
     Dates: start: 20061006, end: 20061010
  3. DIGOSIN [Concomitant]
     Indication: SUPRAVENTRICULAR TACHYCARDIA
     Route: 042
     Dates: start: 20061006, end: 20061010
  4. BLOPRESS [Concomitant]
     Indication: HYPERTENSION
     Route: 048
     Dates: start: 20061006
  5. CARDENALIN [Concomitant]
     Indication: HYPERTENSION
     Route: 048
     Dates: start: 20061006
  6. VASOLAN [Concomitant]
     Indication: SUPRAVENTRICULAR TACHYCARDIA
     Route: 042
     Dates: start: 20061007, end: 20061007
  7. VASOLAN [Concomitant]
     Route: 048
     Dates: start: 20061007

REACTIONS (1)
  - PLATELET COUNT DECREASED [None]
